FAERS Safety Report 10296950 (Version 1)
Quarter: 2014Q3

REPORT INFORMATION
  Report Type: Spontaneous
  Country: US (occurrence: None)
  Receive Date: 20140708
  Receipt Date: 20140708
  Transmission Date: 20150326
  Serious: Yes (Hospitalization)
  Sender: FDA-Public Use
  Company Number: None

PATIENT
  Age: 63 Year
  Sex: Male
  Weight: 80.6 kg

DRUGS (1)
  1. DALTEPARIN [Suspect]
     Active Substance: DALTEPARIN
     Indication: PULMONARY EMBOLISM
     Dosage: 12500 UNITS, EVERY DAY, SQ
     Route: 058
     Dates: start: 20130410, end: 20140105

REACTIONS (4)
  - Deep vein thrombosis [None]
  - Treatment failure [None]
  - Prostatic specific antigen increased [None]
  - Disease recurrence [None]

NARRATIVE: CASE EVENT DATE: 20140105
